FAERS Safety Report 4457764-0 (Version None)
Quarter: 2004Q3

REPORT INFORMATION
  Report Type: 
  Country: None (occurrence: None)
  Receive Date: 20040922
  Receipt Date: 20040909
  Transmission Date: 20050211
  Serious: Yes (Other)
  Sender: FDA-Public Use
  Company Number: 2004067295

PATIENT
  Age: 52 Year
  Sex: Female

DRUGS (1)
  1. ATORVASTATIN CALCIUM [Suspect]
     Indication: HYPERCHOLESTEROLAEMIA
     Dosage: 20 MG (1 IN 1 D)
     Dates: start: 20040101

REACTIONS (2)
  - MYALGIA [None]
  - TENDONITIS [None]
